FAERS Safety Report 10997693 (Version 2)
Quarter: 2015Q2

REPORT INFORMATION
  Report Type: Spontaneous
  Country: HU (occurrence: HU)
  Receive Date: 20150408
  Receipt Date: 20150506
  Transmission Date: 20150821
  Serious: Yes (Death, Hospitalization)
  Sender: FDA-Public Use
  Company Number: HU-PFIZER INC-2015064375

PATIENT
  Age: 68 Year
  Sex: Female

DRUGS (1)
  1. XALKORI [Suspect]
     Active Substance: CRIZOTINIB
     Indication: NEOPLASM MALIGNANT
     Dosage: 2X 250 MG
     Route: 048
     Dates: start: 201404

REACTIONS (7)
  - Endocrine disorder [Unknown]
  - Neoplasm malignant [Fatal]
  - Electrolyte imbalance [Fatal]
  - Hypocalcaemia [Unknown]
  - Hyponatraemia [Not Recovered/Not Resolved]
  - Dysphagia [Not Recovered/Not Resolved]
  - Disease progression [Fatal]

NARRATIVE: CASE EVENT DATE: 20141217
